FAERS Safety Report 6921342-1 (Version None)
Quarter: 2010Q3

REPORT INFORMATION
  Report Type: 
  Country: None (occurrence: None)
  Receive Date: 20100812
  Receipt Date: 20100729
  Transmission Date: 20110219
  Serious: Yes (Life-Threatening, Hospitalization, Other)
  Sender: FDA-Public Use
  Company Number: US-ELI_LILLY_AND_COMPANY-US201008000225

PATIENT
  Sex: Male
  Weight: 179.59 kg

DRUGS (7)
  1. ZYPREXA ZYDIS [Suspect]
     Indication: MAJOR DEPRESSION
     Dosage: 5 MG, EACH MORNING
  2. ZYPREXA ZYDIS [Suspect]
     Dosage: 10 MG, EACH EVENING
  3. EFFEXOR [Concomitant]
  4. CRESTOR [Concomitant]
  5. LIPITOR [Concomitant]
  6. SYMMETREL [Concomitant]
  7. ATIVAN [Concomitant]

REACTIONS (6)
  - AKATHISIA [None]
  - DYSPNOEA [None]
  - INFECTION [None]
  - MUSCULOSKELETAL STIFFNESS [None]
  - TOOTH INFECTION [None]
  - WEIGHT INCREASED [None]
